FAERS Safety Report 13319733 (Version 1)
Quarter: 2017Q1

REPORT INFORMATION
  Report Type: Spontaneous
  Country: US (occurrence: US)
  Receive Date: 20170309
  Receipt Date: 20170309
  Transmission Date: 20170428
  Serious: No
  Sender: FDA-Public Use
  Company Number: US-TEVA-728511ACC

PATIENT
  Sex: Male

DRUGS (1)
  1. BUSPIRONE [Suspect]
     Active Substance: BUSPIRONE HYDROCHLORIDE
     Dates: start: 201612

REACTIONS (3)
  - Feeling abnormal [Unknown]
  - Nightmare [Unknown]
  - Insomnia [Unknown]
